FAERS Safety Report 19753461 (Version 4)
Quarter: 2023Q2

REPORT INFORMATION
  Report Type: Report from Study
  Country: JP (occurrence: JP)
  Receive Date: 20210827
  Receipt Date: 20230427
  Transmission Date: 20230721
  Serious: Yes (Death, Hospitalization, Other)
  Sender: FDA-Public Use
  Company Number: JP-TAKEDA-2021TJP078607

PATIENT
  Age: 76 Year
  Sex: Male
  Weight: 45 kg

DRUGS (11)
  1. LEUPROLIDE ACETATE [Suspect]
     Active Substance: LEUPROLIDE ACETATE
     Indication: Bulbospinal muscular atrophy congenital
     Dosage: 11.25 MILLIGRAM, Q3MONTHS
     Route: 058
     Dates: start: 20171106, end: 20210512
  2. BELSOMRA [Concomitant]
     Active Substance: SUVOREXANT
     Indication: Insomnia
     Dosage: 15 MILLIGRAM
     Route: 065
     Dates: start: 20210723, end: 20210807
  3. SODIUM BICARBONATE\SODIUM PHOSPHATE, MONOBASIC [Concomitant]
     Active Substance: SODIUM BICARBONATE\SODIUM PHOSPHATE, MONOBASIC
     Indication: Product used for unknown indication
     Dosage: 1 DOSAGE FORM
     Route: 065
     Dates: end: 20180508
  4. AZUNOL [Concomitant]
     Indication: Eczema
  5. AZUNOL [Concomitant]
     Indication: Eczema
     Dosage: UNK
     Route: 065
     Dates: start: 20180509, end: 20210807
  6. GENTAMICIN SULFATE [Concomitant]
     Active Substance: GENTAMICIN SULFATE
     Indication: Decubitus ulcer
     Dosage: UNK
     Route: 065
     Dates: start: 20180509, end: 20210807
  7. GENTAMICIN SULFATE [Concomitant]
     Active Substance: GENTAMICIN SULFATE
     Indication: Decubitus ulcer
  8. SENNOSIDES A AND B [Concomitant]
     Active Substance: SENNOSIDES A AND B
     Indication: Product used for unknown indication
     Dosage: 24 MILLIGRAM
     Route: 065
     Dates: start: 20180801, end: 20210807
  9. EURAX [Concomitant]
     Active Substance: CROTAMITON
     Indication: Eczema
  10. EURAX [Concomitant]
     Active Substance: CROTAMITON
     Indication: Eczema
     Dosage: UNK
     Route: 065
     Dates: start: 20180801, end: 20210807
  11. MIYA-BM [Concomitant]
     Active Substance: CLOSTRIDIUM BUTYRICUM SPORES STRAIN M-55
     Indication: Product used for unknown indication
     Dosage: 3 GRAM
     Route: 065
     Dates: start: 20190417, end: 20210807

REACTIONS (4)
  - Asphyxia [Fatal]
  - Bulbospinal muscular atrophy congenital [Fatal]
  - Stress cardiomyopathy [Recovering/Resolving]
  - Malnutrition [Not Recovered/Not Resolved]

NARRATIVE: CASE EVENT DATE: 20210701
